FAERS Safety Report 14669566 (Version 1)
Quarter: 2018Q1

REPORT INFORMATION
  Report Type: Spontaneous
  Country: US (occurrence: US)
  Receive Date: 20180321
  Receipt Date: 20180321
  Transmission Date: 20180509
  Serious: Yes (Hospitalization)
  Sender: FDA-Public Use
  Company Number: None

PATIENT
  Age: 47 Year
  Sex: Female
  Weight: 62.7 kg

DRUGS (13)
  1. LEVAQUIN [Concomitant]
     Active Substance: LEVOFLOXACIN
  2. LACTULOSE. [Concomitant]
     Active Substance: LACTULOSE
  3. ZINC. [Concomitant]
     Active Substance: ZINC
  4. METRONIDAZOLE. [Concomitant]
     Active Substance: METRONIDAZOLE
  5. LASIX [Concomitant]
     Active Substance: FUROSEMIDE
  6. EPOGEN [Concomitant]
     Active Substance: ERYTHROPOIETIN
  7. PROPANOLOL [Concomitant]
     Active Substance: PROPRANOLOL HYDROCHLORIDE
  8. RIFAXIMIN. [Concomitant]
     Active Substance: RIFAXIMIN
  9. EPCLUSA [Suspect]
     Active Substance: SOFOSBUVIR\VELPATASVIR
     Indication: HEPATITIS C
     Dosage: 400MG/100MG QD ORAL
     Route: 048
     Dates: start: 20170215, end: 20170817
  10. CEFOTAXIME [Concomitant]
     Active Substance: CEFOTAXIME SODIUM
  11. CIPROFLOXACIN. [Concomitant]
     Active Substance: CIPROFLOXACIN
  12. POTASSIUM [Concomitant]
     Active Substance: POTASSIUM
  13. ALDACTONE [Concomitant]
     Active Substance: SPIRONOLACTONE

REACTIONS (2)
  - Peritonitis bacterial [None]
  - Leukocytosis [None]

NARRATIVE: CASE EVENT DATE: 20170220
